FAERS Safety Report 7905221-9 (Version None)
Quarter: 2011Q4

REPORT INFORMATION
  Report Type: 
  Country: None (occurrence: None)
  Receive Date: 20111109
  Receipt Date: 20111028
  Transmission Date: 20120403
  Serious: Yes (Hospitalization, Other)
  Sender: FDA-Public Use
  Company Number: PHHY2010JP57193

PATIENT
  Age: 62 Year
  Sex: Male

DRUGS (3)
  1. SYMMETREL [Suspect]
     Indication: PARKINSON'S DISEASE
     Dosage: 50 MG, TID
     Route: 048
  2. COMTAN [Suspect]
  3. LEVODOPA [Suspect]

REACTIONS (16)
  - ABNORMAL BEHAVIOUR [None]
  - DECREASED APPETITE [None]
  - BLOOD UREA INCREASED [None]
  - DELUSION [None]
  - IRRITABILITY [None]
  - TOXICITY TO VARIOUS AGENTS [None]
  - HYPERHIDROSIS [None]
  - DYSKINESIA [None]
  - BLOOD CREATININE INCREASED [None]
  - HALLUCINATION [None]
  - MYOCLONUS [None]
  - AGGRESSION [None]
  - TREMOR [None]
  - DEHYDRATION [None]
  - RENAL IMPAIRMENT [None]
  - SPEECH DISORDER [None]
